FAERS Safety Report 5919566-5 (Version None)
Quarter: 2008Q4

REPORT INFORMATION
  Report Type: 
  Country: None (occurrence: None)
  Receive Date: 20081015
  Receipt Date: 20071226
  Transmission Date: 20090506
  Serious: No
  Sender: FDA-Public Use
  Company Number: US-BRISTOL-MYERS SQUIBB COMPANY-14024830

PATIENT
  Age: 55 Year
  Sex: Female
  Weight: 54 kg

DRUGS (4)
  1. KENALOG-40 [Suspect]
     Indication: TENDONITIS
     Dates: start: 20070601
  2. PREMARIN [Concomitant]
  3. TESTOSTERONE [Concomitant]
  4. VIVELLE [Concomitant]

REACTIONS (1)
  - SKIN DISCOLOURATION [None]
